FAERS Safety Report 5912154-6 (Version None)
Quarter: 2008Q4

REPORT INFORMATION
  Report Type: 
  Country: None (occurrence: None)
  Receive Date: 20081008
  Receipt Date: 20081003
  Transmission Date: 20090506
  Serious: Yes (Other)
  Sender: FDA-Public Use
  Company Number: FR-AVENTIS-200813536FR

PATIENT
  Age: 50 Year
  Sex: Female

DRUGS (4)
  1. IXPRIM [Suspect]
     Indication: SURGERY
     Route: 048
  2. LOVENOX [Suspect]
     Indication: SURGERY
     Route: 058
  3. PERFALGAN [Suspect]
     Indication: SURGERY
     Route: 042
  4. MOPRAL [Suspect]
     Indication: SURGERY

REACTIONS (1)
  - ANGIOEDEMA [None]
